FAERS Safety Report 10548080 (Version 2)
Quarter: 2014Q4

REPORT INFORMATION
  Report Type: Report from Study
  Country: CA (occurrence: CA)
  Receive Date: 20141028
  Receipt Date: 20141103
  Transmission Date: 20150529
  Serious: Yes (Death, Other)
  Sender: FDA-Public Use
  Company Number: PHHY2014CA139374

PATIENT
  Age: 54 Year
  Sex: Male

DRUGS (4)
  1. COLACE [Concomitant]
     Active Substance: DOCUSATE SODIUM
     Indication: PRODUCT USED FOR UNKNOWN INDICATION
     Dosage: 200 MG, UNK
     Route: 065
  2. SENOKOT [Concomitant]
     Active Substance: SENNOSIDES
     Indication: PRODUCT USED FOR UNKNOWN INDICATION
     Dosage: 8.6 MG, UNK
     Route: 065
  3. CLOZARIL [Suspect]
     Active Substance: CLOZAPINE
     Indication: SCHIZOPHRENIA
     Dosage: 650 MG, QD (200 MG + 450 MG)
     Route: 048
     Dates: start: 20110314
  4. AXIRON [Concomitant]
     Active Substance: TESTOSTERONE
     Indication: PRODUCT USED FOR UNKNOWN INDICATION
     Dosage: 1 MG, UNK
     Route: 065

REACTIONS (13)
  - Fatigue [Unknown]
  - Vomiting [Unknown]
  - Sepsis [Fatal]
  - Intestinal dilatation [Unknown]
  - Blood triglycerides increased [Unknown]
  - Nausea [Unknown]
  - Myocardial infarction [Unknown]
  - Tachycardia [Unknown]
  - Cardiac arrest [Fatal]
  - Dizziness [Unknown]
  - Small intestinal obstruction [Fatal]
  - High density lipoprotein decreased [Unknown]
  - Antipsychotic drug level decreased [Unknown]

NARRATIVE: CASE EVENT DATE: 20131120
